FAERS Safety Report 22605511 (Version 4)
Quarter: 2023Q4

REPORT INFORMATION
  Report Type: Spontaneous
  Country: US (occurrence: US)
  Receive Date: 20230615
  Receipt Date: 20231107
  Transmission Date: 20240110
  Serious: No
  Sender: FDA-Public Use
  Company Number: US-PFIZER INC-PV202300106406

PATIENT
  Age: 69 Year
  Sex: Male
  Weight: 85.9 kg

DRUGS (1)
  1. BOSULIF [Suspect]
     Active Substance: BOSUTINIB MONOHYDRATE
     Indication: Chronic myeloid leukaemia
     Dosage: 400 MG, DAILY
     Route: 048

REACTIONS (6)
  - Diarrhoea [Not Recovered/Not Resolved]
  - Liver function test increased [Unknown]
  - Weight decreased [Unknown]
  - Pain [Unknown]
  - Chest discomfort [Unknown]
  - Dyspnoea [Unknown]
